FAERS Safety Report 19375500 (Version 2)
Quarter: 2021Q3

REPORT INFORMATION
  Report Type: Spontaneous
  Country: BR (occurrence: BR)
  Receive Date: 20210604
  Receipt Date: 20210723
  Transmission Date: 20211014
  Serious: No
  Sender: FDA-Public Use
  Company Number: BR-SA-2021SA169862

PATIENT
  Age: 2 Year
  Sex: Female
  Weight: 11 kg

DRUGS (10)
  1. DUPIXENT [Suspect]
     Active Substance: DUPILUMAB
     Indication: EPIDERMOLYSIS BULLOSA
     Dosage: 200 MG, Q4W
     Route: 065
  2. RISPERIDONE. [Concomitant]
     Active Substance: RISPERIDONE
     Dosage: UNK
  3. HYDROXYZINE [Concomitant]
     Active Substance: HYDROXYZINE HYDROCHLORIDE
     Indication: PRURITUS
     Dosage: UNK
  4. GABAPENTIN. [Concomitant]
     Active Substance: GABAPENTIN
     Dosage: UNK
  5. DOXEPINE [Concomitant]
     Active Substance: DOXEPIN
     Dosage: UNK
  6. CYCLOSPORINE. [Concomitant]
     Active Substance: CYCLOSPORINE
     Indication: PRURITUS
     Dosage: UNK
     Dates: start: 202010
  7. TARFIC [Concomitant]
     Dosage: UNK
     Route: 061
  8. AMITRIPTYLINE [Concomitant]
     Active Substance: AMITRIPTYLINE
     Dosage: UNK
  9. FEXOFENADINE [Concomitant]
     Active Substance: FEXOFENADINE HYDROCHLORIDE
     Dosage: UNK
     Route: 048
  10. MARACUGINA COMPOSTA [Concomitant]
     Indication: POOR QUALITY SLEEP
     Dosage: UNK

REACTIONS (1)
  - Off label use [Unknown]
